FAERS Safety Report 4431428-1 (Version None)
Quarter: 2004Q3

REPORT INFORMATION
  Report Type: 
  Country: None (occurrence: None)
  Receive Date: 20040824
  Receipt Date: 20020918
  Transmission Date: 20050211
  Serious: Yes (Life-Threatening, Hospitalization)
  Sender: FDA-Public Use
  Company Number: FR-GLAXOSMITHKLINE-B0280783A

PATIENT
  Sex: Male
  Weight: 3.1 kg

DRUGS (5)
  1. RETROVIR [Suspect]
     Indication: ANTIVIRAL PROPHYLAXIS
     Dosage: 11MG TWICE PER DAY
     Route: 048
     Dates: start: 20020814, end: 20020902
  2. COMBIVIR [Suspect]
     Indication: HIV INFECTION
  3. SUSTIVA [Suspect]
     Indication: HIV INFECTION
  4. VIRAMUNE [Suspect]
     Indication: HIV INFECTION
  5. RETROVIR [Suspect]
     Dates: start: 20020814, end: 20020814

REACTIONS (15)
  - ANAEMIA MACROCYTIC [None]
  - BLOOD CREATINE PHOSPHOKINASE INCREASED [None]
  - BLOOD LACTIC ACID INCREASED [None]
  - CAESAREAN SECTION [None]
  - CARDIAC MURMUR [None]
  - DRUG EXPOSURE DURING PREGNANCY [None]
  - HYPOGLYCAEMIA [None]
  - HYPOGLYCAEMIA NEONATAL [None]
  - HYPOTONIA [None]
  - HYPOTONIA NEONATAL [None]
  - LIPASE INCREASED [None]
  - MICROCYTIC ANAEMIA [None]
  - NEONATAL DISORDER [None]
  - PLATELET COUNT INCREASED [None]
  - TACHYCARDIA [None]
